FAERS Safety Report 6522402-X (Version None)
Quarter: 2009Q4

REPORT INFORMATION
  Report Type: 
  Country: None (occurrence: None)
  Receive Date: 20091230
  Receipt Date: 20091217
  Transmission Date: 20100525
  Serious: Yes (Other)
  Sender: FDA-Public Use
  Company Number: BR-ROCHE-669552

PATIENT
  Sex: Female
  Weight: 82 kg

DRUGS (2)
  1. BONIVA [Suspect]
     Indication: PROPHYLAXIS
     Route: 048
     Dates: start: 20091113, end: 20091113
  2. LEXAPRO [Concomitant]
     Indication: STRESS
     Route: 048
     Dates: start: 20070101

REACTIONS (10)
  - ARTHRALGIA [None]
  - CHEST PAIN [None]
  - GAIT DISTURBANCE [None]
  - HERPES ZOSTER [None]
  - IMMUNE SYSTEM DISORDER [None]
  - INSOMNIA [None]
  - JOINT RANGE OF MOTION DECREASED [None]
  - NECK PAIN [None]
  - PYREXIA [None]
  - RENAL PAIN [None]
